FAERS Safety Report 9548993 (Version 2)
Quarter: 2013Q4

REPORT INFORMATION
  Report Type: Spontaneous
  Country: US (occurrence: US)
  Receive Date: 20130924
  Receipt Date: 20131007
  Transmission Date: 20140711
  Serious: No
  Sender: FDA-Public Use
  Company Number: US-PFIZER INC-2013271250

PATIENT
  Age: 57 Year
  Sex: Female

DRUGS (2)
  1. AZITHROMYCIN [Suspect]
     Indication: BACTERIAL INFECTION
     Dosage: 500 MG ON DAY ONE
     Dates: start: 201309, end: 201309
  2. AZITHROMYCIN [Suspect]
     Dosage: 250 MG
     Dates: start: 201309

REACTIONS (1)
  - Drug ineffective [Unknown]
